FAERS Safety Report 5152474-9 (Version None)
Quarter: 2006Q4

REPORT INFORMATION
  Report Type: 
  Country: None (occurrence: None)
  Receive Date: 20061116
  Receipt Date: 20061106
  Transmission Date: 20070319
  Serious: Yes (Hospitalization)
  Sender: FDA-Public Use
  Company Number: US-ELI_LILLY_AND_COMPANY-US200611001162

PATIENT
  Age: 64 Year
  Sex: Female

DRUGS (3)
  1. HUMULIN L [Suspect]
     Indication: DIABETES MELLITUS
     Dosage: UNK, UNKNOWN
     Dates: end: 19860101
  2. HUMULIN L [Suspect]
     Dosage: UNK, UNKNOWN
  3. HUMULIN N [Suspect]
     Indication: DIABETES MELLITUS
     Dosage: UNK, UNKNOWN
     Dates: start: 19860101

REACTIONS (3)
  - BLOOD GLUCOSE FLUCTUATION [None]
  - FEAR [None]
  - LOSS OF CONSCIOUSNESS [None]
